FAERS Safety Report 6687029-8 (Version None)
Quarter: 2010Q2

REPORT INFORMATION
  Report Type: 
  Country: None (occurrence: None)
  Receive Date: 20100414
  Receipt Date: 20100331
  Transmission Date: 20101027
  Serious: Yes (Other)
  Sender: FDA-Public Use
  Company Number: 2010AP000662

PATIENT
  Age: 59 Year
  Sex: Female

DRUGS (5)
  1. OMEPRAZOLE [Suspect]
     Indication: GASTROOESOPHAGEAL REFLUX DISEASE
     Dosage: 20 MG;QD;PO
     Route: 048
     Dates: start: 20100101, end: 20100218
  2. DILTIAZEM HCL [Concomitant]
  3. ERYTHROMYCIN [Concomitant]
  4. TRIMETHOPRIM [Concomitant]
  5. SULFAMETHOXAZOLE [Concomitant]

REACTIONS (8)
  - DRY MOUTH [None]
  - GLOSSODYNIA [None]
  - OEDEMA MOUTH [None]
  - ORAL PAIN [None]
  - OROPHARYNGEAL PAIN [None]
  - PARAESTHESIA ORAL [None]
  - PHARYNGEAL OEDEMA [None]
  - SWOLLEN TONGUE [None]
